FAERS Safety Report 7755399-5 (Version None)
Quarter: 2011Q3

REPORT INFORMATION
  Report Type: 
  Country: None (occurrence: None)
  Receive Date: 20110916
  Receipt Date: 20110907
  Transmission Date: 20111222
  Serious: Yes (Death, Hospitalization)
  Sender: FDA-Public Use
  Company Number: JP-AMGEN-JPNCT2011045624

PATIENT
  Age: 65 Year
  Sex: Male
  Weight: 61 kg

DRUGS (9)
  1. RAMELTEON [Concomitant]
     Route: 041
     Dates: start: 20100106, end: 20110811
  2. EFUDEX [Concomitant]
     Indication: COLORECTAL CANCER
     Route: 040
     Dates: start: 20100106, end: 20110811
  3. OXALIPLATIN [Suspect]
     Indication: COLORECTAL CANCER
     Route: 041
     Dates: start: 20100106, end: 20110811
  4. EFUDEX [Concomitant]
     Route: 041
     Dates: start: 20100106, end: 20110811
  5. PANITUMUMAB [Suspect]
     Indication: COLORECTAL CANCER
     Dosage: 300 MG, Q2WK
     Route: 041
     Dates: start: 20101201, end: 20110811
  6. LEUCOVORIN CALCIUM [Concomitant]
     Indication: COLORECTAL CANCER
     Route: 041
     Dates: start: 20100106, end: 20110811
  7. DECADRON [Concomitant]
     Route: 041
     Dates: start: 20100106, end: 20110811
  8. LEUCOVORIN CALCIUM [Concomitant]
     Indication: COLORECTAL CANCER
     Dosage: UNK
     Route: 041
     Dates: start: 20101224
  9. IMIPENEM CILASTATINE [Concomitant]
     Dosage: 0.5 G, UNK
     Dates: start: 20110811

REACTIONS (1)
  - INTERSTITIAL LUNG DISEASE [None]
